FAERS Safety Report 7474452-7 (Version None)
Quarter: 2011Q2

REPORT INFORMATION
  Report Type: 
  Country: None (occurrence: None)
  Receive Date: 20110512
  Receipt Date: 20110504
  Transmission Date: 20111010
  Serious: Yes (Hospitalization)
  Sender: FDA-Public Use
  Company Number: US-BRISTOL-MYERS SQUIBB COMPANY-15667652

PATIENT
  Age: 69 Year
  Sex: Male

DRUGS (21)
  1. CYTARABINE [Suspect]
  2. ACYCLOVIR [Concomitant]
     Dosage: 1 TAB=800MG
     Route: 048
     Dates: start: 20110201
  3. SIMVASTATIN [Concomitant]
     Dosage: 1 TAB=40MG QHS
     Route: 048
     Dates: start: 20110201
  4. MAGNESIUM SULFATE [Concomitant]
     Dosage: 1000ML/DAY
  5. TERAZOSIN HCL [Concomitant]
  6. MDX-1338 [Suspect]
     Indication: ACUTE MYELOID LEUKAEMIA
     Dosage: PREVIOUS 29MAR11.
     Route: 042
     Dates: start: 20110321, end: 20110412
  7. DAPSONE [Concomitant]
     Dosage: 2 TABS=50MG  ALSO ON 09-APR-2011
     Route: 048
     Dates: start: 20110209
  8. FLUCONAZOLE [Concomitant]
     Dosage: 1 TAB=200MG
     Route: 048
     Dates: start: 20110201, end: 20110503
  9. PAROXETINE HCL [Concomitant]
     Dosage: 1 TAB=10MG
     Route: 048
     Dates: start: 20110201
  10. CIPROFLOXACIN [Concomitant]
     Route: 048
     Dates: start: 20110312
  11. OXYCODONE HCL [Concomitant]
     Route: 048
  12. OMEPRAZOLE [Concomitant]
     Dosage: 1 CAP=20MG EMPTY STOMACH
     Route: 048
     Dates: start: 20110201
  13. POTASSIUM CHLORIDE [Concomitant]
  14. MULTIVITAMIN WITH MINERALS [Concomitant]
     Dosage: 1 DF=1 TAB NO IRON TAB
     Route: 048
  15. ETOPOSIDE [Suspect]
  16. MITOXANTRONE HYDROCHLORIDE [Suspect]
  17. ERTAPENEM [Concomitant]
     Route: 042
     Dates: start: 20110416
  18. SODIUM CHLORIDE [Concomitant]
     Dosage: DOSE:1000ML
     Route: 042
  19. VANCOMYCIN [Concomitant]
     Dosage: IVPB,TWICE WEEKLY
     Route: 042
  20. CEFTAZIDIME [Concomitant]
     Dosage: IVPB
     Route: 042
  21. URSODIOL [Concomitant]
     Dosage: 1 CAP (DF) =300MG
     Route: 048
     Dates: start: 20110306

REACTIONS (6)
  - FEBRILE NEUTROPENIA [None]
  - FALL [None]
  - MENTAL STATUS CHANGES [None]
  - VOMITING [None]
  - HYPOPHAGIA [None]
  - NAUSEA [None]
